FAERS Safety Report 7432555-7 (Version None)
Quarter: 2011Q2

REPORT INFORMATION
  Report Type: 
  Country: None (occurrence: None)
  Receive Date: 20110422
  Receipt Date: 20110411
  Transmission Date: 20111010
  Serious: Yes (Other)
  Sender: FDA-Public Use
  Company Number: IL-ELI_LILLY_AND_COMPANY-IL201104005844

PATIENT

DRUGS (1)
  1. OLANZAPINE [Suspect]

REACTIONS (1)
  - RESPIRATORY DISTRESS [None]
